FAERS Safety Report 15979094 (Version 1)
Quarter: 2019Q1

REPORT INFORMATION
  Report Type: Spontaneous
  Country: ES (occurrence: ES)
  Receive Date: 20190219
  Receipt Date: 20190219
  Transmission Date: 20190418
  Serious: Yes (Hospitalization)
  Sender: FDA-Public Use
  Company Number: ES-009507513-1902ESP005241

PATIENT
  Age: 85 Year
  Sex: Male

DRUGS (3)
  1. LOBIVON [Suspect]
     Active Substance: NEBIVOLOL HYDROCHLORIDE
     Indication: CARDIAC FAILURE
     Dosage: 1.25 MILLIGRAM,Q24H
     Route: 048
     Dates: start: 20181019, end: 20181126
  2. LOBIVON [Suspect]
     Active Substance: NEBIVOLOL HYDROCHLORIDE
     Dosage: 2.5 MILLIGRAM, Q24H
     Route: 048
     Dates: start: 20181127
  3. SINEMET PLUS 25/100 MG COMPRIMIDOS [Suspect]
     Active Substance: CARBIDOPA\LEVODOPA
     Indication: PARKINSON^S DISEASE
     Dosage: 2 DODOSAGE FORM; Q8H
     Route: 048
     Dates: start: 20180817

REACTIONS (1)
  - Bradycardia [Recovered/Resolved]

NARRATIVE: CASE EVENT DATE: 20181214
